FAERS Safety Report 7441502-3 (Version None)
Quarter: 2011Q2

REPORT INFORMATION
  Report Type: 
  Country: None (occurrence: None)
  Receive Date: 20110428
  Receipt Date: 20110425
  Transmission Date: 20111010
  Serious: Yes (Other)
  Sender: FDA-Public Use
  Company Number: US-AMGEN-USASP2011015906

PATIENT
  Age: 52 Year
  Sex: Female
  Weight: 121.54 kg

DRUGS (6)
  1. CORTICOSTEROIDS [Concomitant]
     Indication: IDIOPATHIC THROMBOCYTOPENIC PURPURA
     Dosage: UNK
     Dates: start: 20030101
  2. AMLODIPINE [Concomitant]
     Dosage: 2.5 MG, QD
  3. LISINOPRIL [Concomitant]
     Dosage: 5 MG, QD
  4. NPLATE [Suspect]
     Indication: IDIOPATHIC THROMBOCYTOPENIC PURPURA
     Dosage: 480 A?G, QWK
     Route: 058
     Dates: start: 20081107, end: 20110228
  5. IMMUNOGLOBULINS [Concomitant]
     Indication: IDIOPATHIC THROMBOCYTOPENIC PURPURA
     Dosage: UNK
     Dates: start: 20030101
  6. PREDNISONE [Concomitant]

REACTIONS (2)
  - THERAPEUTIC RESPONSE DECREASED [None]
  - BONE MARROW RETICULIN FIBROSIS [None]
